FAERS Safety Report 20418000 (Version 2)
Quarter: 2022Q1

REPORT INFORMATION
  Report Type: Report from Study
  Country: NL (occurrence: NL)
  Receive Date: 20220202
  Receipt Date: 20220215
  Transmission Date: 20220423
  Serious: Yes (Hospitalization)
  Sender: FDA-Public Use
  Company Number: NL-JNJFOC-20220145206

PATIENT
  Age: 80 Year
  Sex: Male

DRUGS (2)
  1. IBRUTINIB [Suspect]
     Active Substance: IBRUTINIB
     Indication: Chronic lymphocytic leukaemia
     Route: 048
     Dates: start: 20211230, end: 20220122
  2. VENETOCLAX [Suspect]
     Active Substance: VENETOCLAX
     Indication: Chronic lymphocytic leukaemia
     Route: 048
     Dates: start: 20211230, end: 20220122

REACTIONS (1)
  - Bronchitis [Not Recovered/Not Resolved]

NARRATIVE: CASE EVENT DATE: 20220124
